FAERS Safety Report 24616871 (Version 1)
Quarter: 2024Q4

REPORT INFORMATION
  Report Type: Spontaneous
  Country: US (occurrence: US)
  Receive Date: 20241114
  Receipt Date: 20241114
  Transmission Date: 20250114
  Serious: No
  Sender: OTSUKA
  Company Number: US-OTSUKA-2024_010853

PATIENT
  Sex: Female
  Weight: 57.15 kg

DRUGS (5)
  1. NUEDEXTA [Suspect]
     Active Substance: DEXTROMETHORPHAN HYDROBROMIDE\QUINIDINE SULFATE
     Indication: Anxiety
     Dosage: 1 DF (20MG-10MG) BID
     Route: 048
     Dates: start: 2024
  2. LOSARTAN [Concomitant]
     Active Substance: LOSARTAN
     Indication: Hypertension
     Dosage: UNK
     Route: 065
  3. AMLODIPINE [Concomitant]
     Active Substance: AMLODIPINE BESYLATE
     Indication: Hypertension
     Dosage: UNK
     Route: 065
  4. TETRABENAZINE [Concomitant]
     Active Substance: TETRABENAZINE
     Indication: Movement disorder
     Dosage: UNK
     Route: 065
  5. TETRABENAZINE [Concomitant]
     Active Substance: TETRABENAZINE
     Indication: Huntington^s disease

REACTIONS (2)
  - Drug effective for unapproved indication [Unknown]
  - Therapy interrupted [Unknown]
